FAERS Safety Report 9525695 (Version 1)
Quarter: 2013Q1

REPORT INFORMATION
  Report Type: Spontaneous
  Country: US (occurrence: None)
  Receive Date: 20130305
  Receipt Date: 20130305
  Transmission Date: 20140127
  Serious: Yes (Hospitalization, Other)
  Sender: FDA-Public Use
  Company Number: 163-21880-12023019

PATIENT
  Age: 77 Year
  Sex: Female

DRUGS (5)
  1. REVLIMID (LENALIDOMIDE) (25 MILLIGRAM, CAPSULES) [Suspect]
     Indication: PLASMA CELL MYELOMA
     Dosage: DAILY X 21 DAYS ON FOLLOWED BY FOLLOWED BY 7 DAY OFF
     Route: 048
     Dates: start: 20110402, end: 20120127
  2. ASPIRIN [Concomitant]
  3. DEXAMETHASONE [Concomitant]
  4. ZOMETA [Concomitant]
  5. IVIG [Concomitant]

REACTIONS (1)
  - Deep vein thrombosis [None]
